FAERS Safety Report 4554513-2 (Version None)
Quarter: 2005Q1

REPORT INFORMATION
  Report Type: 
  Country: None (occurrence: None)
  Receive Date: 20050118
  Receipt Date: 20050106
  Transmission Date: 20050727
  Serious: Yes (Other)
  Sender: FDA-Public Use
  Company Number: US-JNJFOC-20041001503

PATIENT
  Sex: Female
  Weight: 92.99 kg

DRUGS (1)
  1. RISPERDAL [Suspect]
     Indication: SCHIZOPHRENIA
     Route: 049
     Dates: start: 20030501

REACTIONS (1)
  - BENIGN PANCREATIC NEOPLASM [None]
